FAERS Safety Report 9509610 (Version 1)
Quarter: 2013Q3

REPORT INFORMATION
  Report Type: Spontaneous
  Country: US (occurrence: US)
  Receive Date: 20130909
  Receipt Date: 20130909
  Transmission Date: 20140515
  Serious: No
  Sender: FDA-Public Use
  Company Number: US-BRISTOL-MYERS SQUIBB COMPANY-18911164

PATIENT
  Age: 42 Year
  Sex: Male
  Weight: 117.91 kg

DRUGS (13)
  1. ABILIFY TABS [Suspect]
     Indication: MAJOR DEPRESSION
  2. ABILIFY TABS [Suspect]
     Indication: ANXIETY
  3. ADDERALL [Concomitant]
     Dosage: 50MG BID AND 30MG BID
  4. GABAPENTIN [Concomitant]
  5. SUBOXONE [Concomitant]
  6. MAGNESIUM [Concomitant]
  7. VITAMIN B12 [Concomitant]
  8. CALCIUM [Concomitant]
  9. VITAMIN D [Concomitant]
  10. FISH OIL [Concomitant]
  11. CLONIDINE [Concomitant]
  12. PRAZOSIN [Concomitant]
  13. CLARITIN [Concomitant]

REACTIONS (7)
  - Akathisia [Unknown]
  - Irritability [Unknown]
  - Formication [Unknown]
  - Weight increased [Unknown]
  - Feeling abnormal [Unknown]
  - Somnolence [Unknown]
  - Fatigue [Unknown]
